FAERS Safety Report 4646326-8 (Version None)
Quarter: 2005Q2

REPORT INFORMATION
  Report Type: 
  Country: None (occurrence: None)
  Receive Date: 20050422
  Receipt Date: 20050406
  Transmission Date: 20051028
  Serious: No
  Sender: FDA-Public Use
  Company Number: CART-10392

PATIENT
  Age: 38 Year
  Sex: Male

DRUGS (1)
  1. CARTICEL [Suspect]
     Indication: KNEE DEFORMITY
     Dosage: 1 NA ONCE IS
     Route: 035
     Dates: start: 20041206, end: 20041206

REACTIONS (1)
  - PULMONARY EMBOLISM [None]
